FAERS Safety Report 24135174 (Version 6)
Quarter: 2025Q2

REPORT INFORMATION
  Report Type: Report from Study
  Country: CA (occurrence: CA)
  Receive Date: 20240725
  Receipt Date: 20250408
  Transmission Date: 20250716
  Serious: Yes (Other)
  Sender: JOHNSON AND JOHNSON
  Company Number: CA-JNJFOC-20240756357

PATIENT
  Age: 40 Year
  Sex: Male
  Weight: 115 kg

DRUGS (13)
  1. REMICADE [Suspect]
     Active Substance: INFLIXIMAB
     Indication: Colitis ulcerative
     Route: 041
  2. REMICADE [Suspect]
     Active Substance: INFLIXIMAB
     Route: 041
     Dates: start: 20240405
  3. REMICADE [Suspect]
     Active Substance: INFLIXIMAB
     Dosage: 24B047; 01-FEB-2027
     Route: 041
     Dates: start: 20240405
  4. REMICADE [Suspect]
     Active Substance: INFLIXIMAB
     Route: 041
  5. REMICADE [Suspect]
     Active Substance: INFLIXIMAB
     Route: 041
  6. REMICADE [Suspect]
     Active Substance: INFLIXIMAB
     Route: 041
     Dates: start: 20241108
  7. REMICADE [Suspect]
     Active Substance: INFLIXIMAB
     Route: 041
     Dates: start: 20240419
  8. REMICADE [Suspect]
     Active Substance: INFLIXIMAB
     Route: 041
  9. REMICADE [Suspect]
     Active Substance: INFLIXIMAB
     Route: 041
  10. REMICADE [Suspect]
     Active Substance: INFLIXIMAB
     Route: 041
  11. REMICADE [Suspect]
     Active Substance: INFLIXIMAB
     Route: 041
  12. REMICADE [Suspect]
     Active Substance: INFLIXIMAB
     Route: 041
  13. REMICADE [Suspect]
     Active Substance: INFLIXIMAB
     Route: 041

REACTIONS (8)
  - Colitis ulcerative [Not Recovered/Not Resolved]
  - Infusion related reaction [Recovered/Resolved]
  - Vomiting [Not Recovered/Not Resolved]
  - Dental operation [Unknown]
  - COVID-19 [Recovered/Resolved]
  - Off label use [Unknown]
  - Inappropriate schedule of product administration [Unknown]
  - Therapeutic product effect decreased [Unknown]

NARRATIVE: CASE EVENT DATE: 20240601
